FAERS Safety Report 7729421-6 (Version None)
Quarter: 2011Q3

REPORT INFORMATION
  Report Type: 
  Country: None (occurrence: None)
  Receive Date: 20110901
  Receipt Date: 20110805
  Transmission Date: 20111222
  Serious: Yes (Other)
  Sender: FDA-Public Use
  Company Number: 2011PROUSA00529

PATIENT
  Age: 69 Year
  Sex: Male
  Weight: 79.3 kg

DRUGS (16)
  1. BENADRYL [Suspect]
     Dates: start: 20110701
  2. LASIX [Concomitant]
  3. CELEXA	/00582602/ (CITALOPRAM HYDROBROMIDE) [Concomitant]
  4. VYTORIN [Concomitant]
  5. COUMADIN [Concomitant]
  6. INSPRA [Concomitant]
  7. COREG [Concomitant]
  8. LUPRON [Concomitant]
  9. PROVENGE [Suspect]
  10. LOVAZA [Concomitant]
  11. POTASSIUM /00031402/ (POTASSIUM CHLORIDE) [Concomitant]
  12. PROVENGE [Suspect]
     Indication: PROSTATE CANCER METASTATIC
     Dosage: 250 ML, SINGLE, INTRAVENOUS
     Route: 042
     Dates: start: 20110805, end: 20110805
  13. PROVENGE [Suspect]
     Indication: PROSTATE CANCER METASTATIC
     Dosage: 250 ML, SINGLE, INTRAVENOUS
     Route: 042
     Dates: start: 20110722, end: 20110722
  14. PROVENGE [Suspect]
     Indication: PROSTATE CANCER METASTATIC
     Dosage: 250 ML, SINGLE, INTRAVENOUS
     Route: 042
     Dates: start: 20110708, end: 20110708
  15. PROVENGE [Suspect]
  16. MAVIK [Concomitant]

REACTIONS (6)
  - INFUSION SITE CELLULITIS [None]
  - NAUSEA [None]
  - THROMBOPHLEBITIS SUPERFICIAL [None]
  - ANGINA PECTORIS [None]
  - FATIGUE [None]
  - CHILLS [None]
